FAERS Safety Report 25109889 (Version 7)
Quarter: 2025Q2

REPORT INFORMATION
  Report Type: Report from Study
  Country: JP (occurrence: JP)
  Receive Date: 20250324
  Receipt Date: 20250622
  Transmission Date: 20250717
  Serious: Yes (Hospitalization)
  Sender: ABBVIE
  Company Number: JP-ABBVIE-6097971

PATIENT
  Age: 63 Year
  Sex: Male

DRUGS (1)
  1. VYALEV [Suspect]
     Active Substance: FOSCARBIDOPA\FOSLEVODOPA
     Indication: Parkinson^s disease
     Route: 058
     Dates: start: 20250106, end: 20250512

REACTIONS (12)
  - Subcutaneous drug absorption impaired [Unknown]
  - Infusion site haemorrhage [Unknown]
  - Infusion site discharge [Unknown]
  - Infusion site induration [Not Recovered/Not Resolved]
  - Parkinson^s disease [Unknown]
  - Therapeutic response decreased [Not Recovered/Not Resolved]
  - Device use error [Unknown]
  - Muscular weakness [Unknown]
  - Asthenia [Unknown]
  - Dyspnoea [Unknown]
  - Infusion site cellulitis [Recovered/Resolved]
  - Infusion site mass [Unknown]

NARRATIVE: CASE EVENT DATE: 20250101
